FAERS Safety Report 5220791-X (Version None)
Quarter: 2007Q1

REPORT INFORMATION
  Report Type: 
  Country: None (occurrence: None)
  Receive Date: 20070126
  Receipt Date: 20070115
  Transmission Date: 20070707
  Serious: Yes (Hospitalization)
  Sender: FDA-Public Use
  Company Number: PHRM2007FR00530

PATIENT
  Age: 79 Year
  Sex: Female

DRUGS (2)
  1. ZOMETA [Suspect]
     Indication: METASTASES TO BONE
     Dosage: 4 MG, QMO
     Route: 042
     Dates: start: 20050701
  2. 5-FU + EPIRUBICIN + CYCLOPHOSPHAMIDE [Concomitant]
     Indication: BREAST CANCER METASTATIC
     Dates: start: 20050801

REACTIONS (3)
  - OSTEOLYSIS [None]
  - OSTEONECROSIS [None]
  - PAIN IN JAW [None]
